FAERS Safety Report 4885995-4 (Version None)
Quarter: 2006Q1

REPORT INFORMATION
  Report Type: 
  Country: None (occurrence: None)
  Receive Date: 20060118
  Receipt Date: 20060118
  Transmission Date: 20060701
  Serious: Yes (Disabling)
  Sender: FDA-Public Use
  Company Number: None

PATIENT
  Age: 73 Year
  Sex: Male
  Weight: 100 kg

DRUGS (12)
  1. OPTIMARK [Suspect]
     Indication: VENTRICULAR DYSFUNCTION
     Dosage: 40 CC ONCE IV BOLUS
     Route: 040
     Dates: start: 20040414, end: 20040414
  2. VANCOMYCIN [Concomitant]
  3. ASPIRIN [Concomitant]
  4. FUROSEMIDE [Concomitant]
  5. MOROPHINE [Concomitant]
  6. POTASSIUM CHLORIDE [Concomitant]
  7. ALBUMIN (HUMAN) [Concomitant]
  8. VERSED [Concomitant]
  9. REGULAR INSULIN [Concomitant]
  10. ZOFRAN [Concomitant]
  11. BLOOD REPLACEMENT [Concomitant]
  12. ANCEF [Concomitant]

REACTIONS (3)
  - ANASTOMOTIC HAEMORRHAGE [None]
  - BREAST HAEMORRHAGE [None]
  - POST PROCEDURAL HAEMORRHAGE [None]
